FAERS Safety Report 9192547 (Version 1)
Quarter: 2013Q1

REPORT INFORMATION
  Report Type: Spontaneous
  Country: TR (occurrence: None)
  Receive Date: 20130325
  Receipt Date: 20130325
  Transmission Date: 20140127
  Serious: Yes (Death, Life-Threatening, Hospitalization)
  Sender: FDA-Public Use
  Company Number: SYM-2013-01944

PATIENT
  Age: 48 Year
  Sex: Male

DRUGS (5)
  1. FLUOROURACIL [Suspect]
     Indication: METASTATIC GASTRIC CANCER
  2. LEUCOVORIN [Suspect]
     Indication: METASTATIC GASTRIC CANCER
  3. DOCETAXEL [Suspect]
     Indication: PRODUCT USED FOR UNKNOWN INDICATION
  4. CISPLATIN [Suspect]
     Indication: PRODUCT USED FOR UNKNOWN INDICATION
  5. IRINOTECAN [Concomitant]

REACTIONS (4)
  - Stress cardiomyopathy [None]
  - Cardiac failure [None]
  - Ventricular fibrillation [None]
  - Ventricular tachycardia [None]
